FAERS Safety Report 20042229 (Version 1)
Quarter: 2021Q4

REPORT INFORMATION
  Report Type: Other
  Country: US (occurrence: US)
  Receive Date: 20211108
  Receipt Date: 20211108
  Transmission Date: 20220303
  Serious: No
  Sender: FDA-Public Use
  Company Number: US-NEUROCRINE BIOSCIENCES INC.-2021NBI06282

PATIENT

DRUGS (3)
  1. INGREZZA [Suspect]
     Active Substance: VALBENAZINE
     Indication: Tardive dyskinesia
     Dosage: 40 MILLIGRAM, QD
     Route: 048
     Dates: start: 20211018, end: 20211022
  2. FLUOXETINE HYDROCHLORIDE [Concomitant]
     Active Substance: FLUOXETINE HYDROCHLORIDE
     Dosage: 80 MILLIGRAM, QD
     Route: 048
  3. OLANZAPINE [Concomitant]
     Active Substance: OLANZAPINE
     Dosage: 5 MILLIGRAM, QD
     Route: 048

REACTIONS (1)
  - Akathisia [Recovered/Resolved]

NARRATIVE: CASE EVENT DATE: 20211021
